FAERS Safety Report 8306277-4 (Version None)
Quarter: 2012Q2

REPORT INFORMATION
  Report Type: 
  Country: None (occurrence: None)
  Receive Date: 20120423
  Receipt Date: 20120416
  Transmission Date: 20120825
  Serious: No
  Sender: FDA-Public Use
  Company Number: US-PFIZER INC-2012094393

PATIENT
  Sex: Male
  Weight: 93 kg

DRUGS (10)
  1. AMLODIPINE [Concomitant]
     Dosage: 10 MG, UNK
  2. ASPIRIN [Concomitant]
     Dosage: UNK
  3. FAMOTIDINE [Concomitant]
     Dosage: UNK MG, UNK
  4. LOVAZA [Concomitant]
     Dosage: UNK
  5. SPIRONOLACTONE [Concomitant]
     Dosage: UNK MG, UNK
  6. PLAVIX [Concomitant]
     Indication: THROMBOSIS
     Dosage: 75 MG, UNK
  7. LIPITOR [Suspect]
     Indication: BLOOD CHOLESTEROL INCREASED
     Dosage: 40 MG, 1X/DAY
     Route: 048
  8. METOPROLOL [Concomitant]
     Dosage: 50 MG, 2X/DAY
  9. OXYCODONE [Concomitant]
     Indication: PAIN
     Dosage: UNK
  10. TRICOR [Concomitant]
     Indication: THROMBOSIS
     Dosage: 145 MG, UNK

REACTIONS (2)
  - NEURALGIA [None]
  - BLOOD PRESSURE FLUCTUATION [None]
